FAERS Safety Report 6570614-1 (Version None)
Quarter: 2010Q1

REPORT INFORMATION
  Report Type: 
  Country: None (occurrence: None)
  Receive Date: 20100204
  Receipt Date: 20100122
  Transmission Date: 20100710
  Serious: Yes (Life-Threatening, Hospitalization)
  Sender: FDA-Public Use
  Company Number: DE-MYLANLABS-2010S1001325

PATIENT
  Sex: Female
  Weight: 52 kg

DRUGS (1)
  1. AZATHIOPRIN [Suspect]
     Indication: POLYARTHRITIS
     Route: 048
     Dates: start: 20090815, end: 20090924

REACTIONS (3)
  - ANAEMIA [None]
  - LEUKOPENIA [None]
  - OROPHARYNGEAL PAIN [None]
